FAERS Safety Report 10502819 (Version 1)
Quarter: 2014Q4

REPORT INFORMATION
  Report Type: Spontaneous
  Country: US (occurrence: US)
  Receive Date: 20141007
  Receipt Date: 20141007
  Transmission Date: 20150528
  Serious: Yes (Other)
  Sender: FDA-Public Use
  Company Number: PHEH2014US019682

PATIENT
  Sex: Female

DRUGS (8)
  1. RECLAST [Suspect]
     Active Substance: ZOLEDRONIC ACID
     Dosage: UNK, YEARLY
     Route: 042
  2. PROTONIX [Concomitant]
     Active Substance: PANTOPRAZOLE SODIUM
     Indication: PRODUCT USED FOR UNKNOWN INDICATION
     Dosage: UNK UKN, UNK
     Route: 065
  3. METOPROLOL [Concomitant]
     Active Substance: METOPROLOL
     Indication: PRODUCT USED FOR UNKNOWN INDICATION
     Dosage: 25 MG, UNK
     Route: 065
  4. RECLAST [Suspect]
     Active Substance: ZOLEDRONIC ACID
     Dosage: UNK, YEARLY
     Route: 042
  5. RECLAST [Suspect]
     Active Substance: ZOLEDRONIC ACID
     Dosage: UNK, YEARLY
     Route: 042
  6. EXCEDRIN [Concomitant]
     Active Substance: ACETAMINOPHEN\ASPIRIN\CAFFEINE
     Indication: MIGRAINE
     Dosage: UNK UKN, UNK
     Route: 065
  7. LATANOPROST. [Concomitant]
     Active Substance: LATANOPROST
     Indication: GLAUCOMA
     Dosage: UNK UKN, UNK
     Route: 065
  8. RECLAST [Suspect]
     Active Substance: ZOLEDRONIC ACID
     Indication: PRODUCT USED FOR UNKNOWN INDICATION
     Dosage: UNK, YEARLY
     Route: 042

REACTIONS (15)
  - Temporomandibular joint syndrome [Unknown]
  - Depression [Unknown]
  - Gastrooesophageal reflux disease [Unknown]
  - Osteoporosis [Unknown]
  - Myalgia [Unknown]
  - Burning sensation [Unknown]
  - Tooth disorder [Unknown]
  - Headache [Unknown]
  - Vomiting [Unknown]
  - Kidney infection [Unknown]
  - Osteomyelitis [Unknown]
  - Sinusitis [Unknown]
  - Hypokinesia [Unknown]
  - Influenza like illness [Unknown]
  - Erythema [Unknown]
